FAERS Safety Report 19252830 (Version 1)
Quarter: 2021Q2

REPORT INFORMATION
  Report Type: Report from Study
  Country: PL (occurrence: PL)
  Receive Date: 20210513
  Receipt Date: 20210513
  Transmission Date: 20210717
  Serious: Yes (Other)
  Sender: FDA-Public Use
  Company Number: PL-TAKEDA-2021TUS028970

PATIENT
  Age: 50 Year
  Sex: Male
  Weight: 80 kg

DRUGS (5)
  1. PREDNISONE. [Concomitant]
     Active Substance: PREDNISONE
     Indication: COLITIS ULCERATIVE
     Dosage: 10 MILLIGRAM, QD
     Route: 048
     Dates: end: 202012
  2. VEDOLIZUMAB [Suspect]
     Active Substance: VEDOLIZUMAB
     Indication: COLITIS ULCERATIVE
     Dosage: 300 MILLIGRAM
     Route: 042
     Dates: start: 20201223
  3. MESALAZINE [Concomitant]
     Active Substance: MESALAMINE
     Indication: COLITIS ULCERATIVE
     Dosage: 1000 MILLIGRAM, TID
     Route: 048
  4. CYCLONAMINE [Concomitant]
     Active Substance: ETHAMSYLATE
     Indication: HAEMORRHAGE
     Dosage: 250 MILLIGRAM, TID
     Route: 048
     Dates: start: 20201227, end: 202101
  5. FERINJECT [Concomitant]
     Active Substance: FERRIC CARBOXYMALTOSE
     Indication: IRON DEFICIENCY
     Dosage: 500 MILLIGRAM, QD
     Route: 042
     Dates: start: 20210107, end: 20210107

REACTIONS (2)
  - Haemorrhoidal haemorrhage [Recovered/Resolved]
  - Iron deficiency anaemia [Recovered/Resolved]

NARRATIVE: CASE EVENT DATE: 20201223
